FAERS Safety Report 5197307-X (Version None)
Quarter: 2007Q1

REPORT INFORMATION
  Report Type: 
  Country: None (occurrence: None)
  Receive Date: 20070103
  Receipt Date: 20061222
  Transmission Date: 20070707
  Serious: Yes (Hospitalization)
  Sender: FDA-Public Use
  Company Number: SE-AMGEN-UK204823

PATIENT
  Age: 35 Year
  Sex: Female

DRUGS (5)
  1. NEUPOGEN [Suspect]
     Indication: CHEMOTHERAPY
  2. CYCLOPHOSPHAMIDE [Concomitant]
  3. VINCRISTINE [Concomitant]
  4. ADRIAMYCIN PFS [Concomitant]
  5. DEXAMETHASONE [Concomitant]

REACTIONS (2)
  - BONE MARROW ISCHAEMIA [None]
  - BONE PAIN [None]
